FAERS Safety Report 10227693 (Version 1)
Quarter: 2014Q2

REPORT INFORMATION
  Report Type: Spontaneous
  Country: DE (occurrence: DE)
  Receive Date: 20140610
  Receipt Date: 20140610
  Transmission Date: 20141212
  Serious: Yes (Other)
  Sender: FDA-Public Use
  Company Number: DE-BAYER-2014-079606

PATIENT
  Age: 37 Year
  Sex: Male

DRUGS (8)
  1. MOXIFLOXACIN ORAL [Suspect]
     Indication: DISSEMINATED TUBERCULOSIS
     Dosage: UNK
  2. MOXIFLOXACIN ORAL [Suspect]
     Indication: PULMONARY TUBERCULOSIS
  3. RIFAMPICIN [Concomitant]
     Indication: DISSEMINATED TUBERCULOSIS
  4. RIFAMPICIN [Concomitant]
     Indication: BONE TUBERCULOSIS
  5. PYRAZINAMIDE [Concomitant]
     Indication: DISSEMINATED TUBERCULOSIS
  6. PYRAZINAMIDE [Concomitant]
     Indication: BONE TUBERCULOSIS
  7. ETHAMBUTOL [Concomitant]
     Indication: DISSEMINATED TUBERCULOSIS
  8. ETHAMBUTOL [Concomitant]
     Indication: BONE TUBERCULOSIS

REACTIONS (2)
  - Off label use [Recovering/Resolving]
  - Pulmonary sarcoidosis [Recovering/Resolving]
